FAERS Safety Report 9958593 (Version 1)
Quarter: 2014Q1

REPORT INFORMATION
  Report Type: Spontaneous
  Country: IN (occurrence: IN)
  Receive Date: 20140305
  Receipt Date: 20140305
  Transmission Date: 20141002
  Serious: Yes (Other)
  Sender: FDA-Public Use
  Company Number: IN-ACCORD-022171

PATIENT
  Age: 64 Year
  Sex: Male

DRUGS (6)
  1. CLOPIDOGREL [Suspect]
     Indication: CORONARY ARTERY DISEASE
  2. METHOTREXATE [Suspect]
     Indication: PSORIASIS
  3. ACETYLSALICYLIC ACID [Concomitant]
     Indication: CORONARY ARTERY DISEASE
  4. ATENOLOL/ATENOLOL HYDROCHLORIDE [Concomitant]
     Indication: CORONARY ARTERY DISEASE
  5. DILTIAZEM [Concomitant]
     Indication: CORONARY ARTERY DISEASE
  6. ATORVASTATIN [Concomitant]
     Indication: CORONARY ARTERY DISEASE

REACTIONS (2)
  - Psoriasis [Recovered/Resolved]
  - Vomiting [Unknown]
